FAERS Safety Report 8517206-2 (Version None)
Quarter: 2012Q3

REPORT INFORMATION
  Report Type: 
  Country: None (occurrence: None)
  Receive Date: 20120718
  Receipt Date: 20120710
  Transmission Date: 20120928
  Serious: Yes (Hospitalization, Other)
  Sender: FDA-Public Use
  Company Number: US-PFIZER INC-2012165235

PATIENT
  Sex: Female

DRUGS (12)
  1. AMPYRA [Suspect]
     Dosage: 10 MG, 2X/DAY
     Dates: start: 20111101
  2. ESTRADIOL [Concomitant]
  3. CLONIDINE [Suspect]
     Indication: HYPERTENSION
     Dosage: UNK
     Dates: start: 20111201
  4. ZITHROMAX [Suspect]
     Dosage: UNK
     Dates: start: 20111201
  5. COPAXONE [Suspect]
     Dosage: UNK
     Dates: start: 20120605
  6. LISINOPRIL [Concomitant]
     Dosage: UNK
  7. FINGOLIMOD [Suspect]
     Dosage: UNK
  8. OMEPRAZOLE [Concomitant]
     Dosage: UNK
  9. BETASERON [Concomitant]
     Dosage: UNK
     Dates: start: 20120101, end: 20120501
  10. TRAZODONE [Concomitant]
     Dosage: UNK
  11. PAXIL [Concomitant]
     Dosage: UNK
  12. XANAX [Concomitant]
     Dosage: UNK

REACTIONS (10)
  - CONVULSION [None]
  - DRUG EFFECT DECREASED [None]
  - BLOOD PRESSURE ABNORMAL [None]
  - INJECTION SITE PAIN [None]
  - OEDEMA [None]
  - HEADACHE [None]
  - DIZZINESS [None]
  - ENCEPHALOPATHY [None]
  - CONFUSIONAL STATE [None]
  - ERYTHEMA [None]
